FAERS Safety Report 5381989-3 (Version None)
Quarter: 2007Q3

REPORT INFORMATION
  Report Type: 
  Country: None (occurrence: None)
  Receive Date: 20070709
  Receipt Date: 20070702
  Transmission Date: 20080115
  Serious: Yes (Life-Threatening)
  Sender: FDA-Public Use
  Company Number: B0474726A

PATIENT
  Age: 44 Year
  Sex: Female
  Weight: 46 kg

DRUGS (8)
  1. FLOLAN [Suspect]
     Indication: PULMONARY HYPERTENSION
     Route: 042
     Dates: start: 20060526
  2. BERAPROST SODIUM [Concomitant]
     Indication: PULMONARY HYPERTENSION
     Route: 048
     Dates: start: 20051101, end: 20060609
  3. ACARDI [Concomitant]
     Indication: CARDIAC FAILURE
     Route: 048
     Dates: start: 20060502
  4. FUROSEMIDE [Concomitant]
     Indication: CARDIAC FAILURE
     Route: 048
     Dates: start: 20051101
  5. ALDACTONE [Concomitant]
     Indication: CARDIAC FAILURE
     Dosage: 12.5MG PER DAY
     Route: 048
     Dates: start: 20051101
  6. TAKEPRON [Concomitant]
     Indication: GASTRIC ULCER
     Route: 048
  7. CEFAZOLIN SODIUM [Concomitant]
     Indication: INFECTION
     Dosage: 2G PER DAY
     Route: 042
     Dates: start: 20060526, end: 20060604
  8. DOBUTREX [Concomitant]
     Indication: CARDIAC FAILURE
     Route: 042
     Dates: start: 20060526, end: 20060608

REACTIONS (1)
  - HYPOXIA [None]
